FAERS Safety Report 8179823-1 (Version None)
Quarter: 2012Q1

REPORT INFORMATION
  Report Type: 
  Country: None (occurrence: None)
  Receive Date: 20120229
  Receipt Date: 20120229
  Transmission Date: 20120608
  Serious: Yes (Hospitalization)
  Sender: FDA-Public Use
  Company Number: None

PATIENT
  Sex: Male
  Weight: 17.2 kg

DRUGS (4)
  1. MERCAPTOPURINE [Suspect]
     Dosage: 1550 MG
  2. VINCRISTINE SULFATE [Suspect]
     Dosage: 2.2 MG
  3. METHOTREXATE [Suspect]
     Dosage: 94.5 MG
  4. DEXAMETHASONE [Suspect]
     Dosage: 40 MG

REACTIONS (4)
  - HYPOGLYCAEMIA [None]
  - FATIGUE [None]
  - URINE KETONE BODY PRESENT [None]
  - FASTING [None]
